FAERS Safety Report 13115493 (Version 2)
Quarter: 2017Q2

REPORT INFORMATION
  Report Type: Spontaneous
  Country: GB (occurrence: GB)
  Receive Date: 20170113
  Receipt Date: 20170403
  Transmission Date: 20170830
  Serious: Yes (Hospitalization, Other)
  Sender: FDA-Public Use
  Company Number: GB-ABBVIE-17P-167-1834743-00

PATIENT
  Age: 46 Year
  Sex: Female

DRUGS (3)
  1. CLINDAMYCIN. [Concomitant]
     Active Substance: CLINDAMYCIN
     Indication: PRODUCT USED FOR UNKNOWN INDICATION
     Dates: start: 201606, end: 20160923
  2. HUMIRA [Suspect]
     Active Substance: ADALIMUMAB
     Indication: HIDRADENITIS
     Route: 058
  3. RIFAMPICIN [Concomitant]
     Active Substance: RIFAMPIN
     Indication: PRODUCT USED FOR UNKNOWN INDICATION
     Dates: start: 201606, end: 20160923

REACTIONS (1)
  - Tubo-ovarian abscess [Recovering/Resolving]

NARRATIVE: CASE EVENT DATE: 20160902
